FAERS Safety Report 11610749 (Version 3)
Quarter: 2016Q1

REPORT INFORMATION
  Report Type: Spontaneous
  Country: US (occurrence: US)
  Receive Date: 20151008
  Receipt Date: 20160217
  Transmission Date: 20160525
  Serious: Yes (Hospitalization)
  Sender: FDA-Public Use
  Company Number: US-BAYER-2015-437079

PATIENT
  Age: 28 Year
  Sex: Female
  Weight: 52.15 kg

DRUGS (4)
  1. MIRENA [Suspect]
     Active Substance: LEVONORGESTREL
     Indication: CONTRACEPTION
  2. MIRENA [Suspect]
     Active Substance: LEVONORGESTREL
     Indication: CONTRACEPTION
     Dosage: 20 MCG/24HR, CONT
     Route: 015
     Dates: start: 20120309, end: 20150313
  3. ST. JOHN^S WORT [Concomitant]
     Active Substance: ST. JOHN^S WORT
  4. L-LYSINE [Concomitant]
     Active Substance: LYSINE

REACTIONS (10)
  - Emotional distress [None]
  - Fear of disease [None]
  - Pain [None]
  - Quality of life decreased [None]
  - Anxiety [None]
  - Uterine scar [None]
  - Emotional distress [None]
  - Injury [None]
  - Uterine perforation [None]
  - Device issue [None]

NARRATIVE: CASE EVENT DATE: 20120405
